FAERS Safety Report 8591092-7 (Version None)
Quarter: 2012Q3

REPORT INFORMATION
  Report Type: 
  Country: None (occurrence: None)
  Receive Date: 20120813
  Receipt Date: 20120806
  Transmission Date: 20120928
  Serious: Yes (Other)
  Sender: FDA-Public Use
  Company Number: US-JNJFOC-20120803105

PATIENT
  Sex: Female
  Weight: 72.58 kg

DRUGS (7)
  1. SYNTHROID [Concomitant]
     Indication: THYROID DISORDER
     Route: 048
  2. XARELTO [Suspect]
     Indication: HIP ARTHROPLASTY
     Route: 048
     Dates: start: 20120723
  3. KEPPRA [Concomitant]
     Indication: BRAIN NEOPLASM
     Route: 048
  4. XARELTO [Suspect]
     Indication: THROMBOSIS PROPHYLAXIS
     Route: 048
     Dates: start: 20120723
  5. NUCYNTA [Suspect]
     Indication: PAIN
     Dosage: AS NEEDED
     Route: 048
     Dates: start: 20120723, end: 20120803
  6. LANSOPRAZOLE [Concomitant]
     Indication: GASTRIC DISORDER
  7. DEXAMETHASONE [Concomitant]
     Indication: BRAIN NEOPLASM

REACTIONS (3)
  - PARAESTHESIA [None]
  - INITIAL INSOMNIA [None]
  - ABNORMAL LOSS OF WEIGHT [None]
